FAERS Safety Report 16378190 (Version 2)
Quarter: 2024Q2

REPORT INFORMATION
  Report Type: Report from Study
  Country: US (occurrence: None)
  Receive Date: 20190531
  Receipt Date: 20240522
  Transmission Date: 20240716
  Serious: Yes (Disabling)
  Sender: FDA-Public Use
  Company Number: 2018SE53855

PATIENT
  Age: 71 Year
  Sex: Female

DRUGS (1)
  1. BYETTA [Suspect]
     Active Substance: EXENATIDE
     Indication: Diabetes mellitus
     Dosage: 250 MCG / 2.4 ML10.0UG UNKNOWN

REACTIONS (4)
  - Injury [Unknown]
  - Infection [Unknown]
  - Anger [Unknown]
  - Device malfunction [Unknown]

NARRATIVE: CASE EVENT DATE: 20150101
